FAERS Safety Report 5158153-6 (Version None)
Quarter: 2006Q4

REPORT INFORMATION
  Report Type: 
  Country: None (occurrence: None)
  Receive Date: 20061120
  Receipt Date: 20061120
  Transmission Date: 20070319
  Serious: Yes (Other)
  Sender: FDA-Public Use
  Company Number: None

PATIENT
  Age: 25 Year
  Sex: Female
  Weight: 54.4316 kg

DRUGS (1)
  1. APRI 0.15 MG BARR LABRATORIES [Suspect]
     Indication: CONTRACEPTION
     Dosage: 1 TABLET 1/DAY PO
     Route: 048
     Dates: start: 20061102, end: 20061118

REACTIONS (11)
  - ABDOMINAL PAIN UPPER [None]
  - DEPRESSION [None]
  - DIZZINESS [None]
  - EPISTAXIS [None]
  - HEADACHE [None]
  - INCREASED APPETITE [None]
  - INSOMNIA [None]
  - VAGINAL HAEMORRHAGE [None]
  - VISION BLURRED [None]
  - VOMITING [None]
  - WEIGHT INCREASED [None]
